FAERS Safety Report 9410622 (Version 2)
Quarter: 2013Q3

REPORT INFORMATION
  Report Type: Spontaneous
  Country: US (occurrence: US)
  Receive Date: 20130719
  Receipt Date: 20130924
  Transmission Date: 20140515
  Serious: No
  Sender: FDA-Public Use
  Company Number: US-B.I. PHARMACEUTICALS,INC./RIDGEFIELD-2013-BI-21061BP

PATIENT
  Age: 87 Year
  Sex: Female

DRUGS (6)
  1. COMBIVENT [Suspect]
     Indication: CHRONIC OBSTRUCTIVE PULMONARY DISEASE
     Dosage: STRENGTH: 20 MCG / 100 MCG; DAILY DOSE: 160 MCG/ 800MG
     Dates: start: 201306
  2. LEXAPRO [Concomitant]
     Dosage: 10 MG
     Route: 048
     Dates: start: 20120817
  3. LISINOPRIL [Concomitant]
     Dosage: 10 MG
     Route: 048
     Dates: start: 20130513
  4. MONTELUKAST [Concomitant]
     Dosage: 5 MG
     Route: 048
     Dates: start: 20130325
  5. PREDNISONE [Concomitant]
     Dosage: 10 MG
     Route: 048
     Dates: start: 20130513
  6. COMBIVENT [Concomitant]
     Dosage: STRENGTH: 18-103 MCG/ACTUATION AEROSOL
     Route: 048
     Dates: start: 20130211

REACTIONS (1)
  - Drug prescribing error [Not Recovered/Not Resolved]
